FAERS Safety Report 7647713-6 (Version None)
Quarter: 2011Q3

REPORT INFORMATION
  Report Type: 
  Country: None (occurrence: None)
  Receive Date: 20110801
  Receipt Date: 20110801
  Transmission Date: 20111222
  Serious: Yes (Other)
  Sender: FDA-Public Use
  Company Number: None

PATIENT
  Age: 5 Year
  Sex: Female
  Weight: 23.133 kg

DRUGS (1)
  1. SINGULAIR [Suspect]
     Dosage: 1 TABLET
     Route: 048

REACTIONS (7)
  - DYSPHAGIA [None]
  - SCREAMING [None]
  - DISORIENTATION [None]
  - ANXIETY [None]
  - HALLUCINATION [None]
  - DYSPNOEA [None]
  - FEAR [None]
